FAERS Safety Report 6974657-5 (Version None)
Quarter: 2010Q3

REPORT INFORMATION
  Report Type: 
  Country: None (occurrence: None)
  Receive Date: 20100909
  Receipt Date: 20081216
  Transmission Date: 20110219
  Serious: No
  Sender: FDA-Public Use
  Company Number: US-WYE-H06854008

PATIENT
  Sex: Female
  Weight: 89.44 kg

DRUGS (4)
  1. PRISTIQ [Suspect]
     Indication: DEPRESSION
     Route: 048
     Dates: start: 20081103
  2. METFORMIN [Concomitant]
  3. VITAMIN D [Concomitant]
  4. ASCORBIC ACID/ERGOCALCIFEROL/FOLIC ACID/NICOTINAMIDE/PANTHENOL/RETINOL [Concomitant]

REACTIONS (2)
  - FEELING ABNORMAL [None]
  - THINKING ABNORMAL [None]
